FAERS Safety Report 13700413 (Version 2)
Quarter: 2017Q3

REPORT INFORMATION
  Report Type: Spontaneous
  Country: US (occurrence: US)
  Receive Date: 20170629
  Receipt Date: 20170815
  Transmission Date: 20171127
  Serious: No
  Sender: FDA-Public Use
  Company Number: ALCN2017US004128

PATIENT
  Sex: Male

DRUGS (1)
  1. ICAPS LO [Suspect]
     Active Substance: MINERALS\VITAMINS
     Indication: VITAMIN SUPPLEMENTATION
     Route: 065

REACTIONS (2)
  - Product quality issue [Unknown]
  - Foreign body in respiratory tract [Unknown]
